FAERS Safety Report 5109564-6 (Version None)
Quarter: 2006Q3

REPORT INFORMATION
  Report Type: 
  Country: None (occurrence: None)
  Receive Date: 20060731
  Receipt Date: 20060405
  Transmission Date: 20061208
  Serious: No
  Sender: FDA-Public Use
  Company Number: 2006PV011528

PATIENT
  Age: 53 Year
  Sex: Male
  Weight: 158.759 kg

DRUGS (6)
  1. BYETTA [Suspect]
     Indication: DIABETES MELLITUS NON-INSULIN-DEPENDENT
     Dosage: 5 MCG BID SC
     Route: 058
     Dates: start: 20060306, end: 20060404
  2. ACTOS [Concomitant]
  3. GLUCOTROL [Concomitant]
  4. GLUCOTROL [Concomitant]
  5. GLUCOPHAGE [Concomitant]
  6. NEXIUM [Concomitant]

REACTIONS (3)
  - ABDOMINAL DISTENSION [None]
  - ABDOMINAL PAIN [None]
  - ERUCTATION [None]
